FAERS Safety Report 7584708-5 (Version None)
Quarter: 2011Q2

REPORT INFORMATION
  Report Type: 
  Country: None (occurrence: None)
  Receive Date: 20110630
  Receipt Date: 20110617
  Transmission Date: 20111010
  Serious: Yes (Other)
  Sender: FDA-Public Use
  Company Number: PHHY2011JP54388

PATIENT
  Sex: Male

DRUGS (6)
  1. VOLTAREN [Suspect]
     Indication: PYREXIA
  2. PAXIL [Concomitant]
     Route: 048
  3. ZOLPIDEM [Concomitant]
     Route: 048
  4. PENICILLIN [Concomitant]
  5. VOLTAREN [Suspect]
     Indication: PAIN
     Route: 054
  6. DEPAS [Concomitant]
     Route: 048

REACTIONS (2)
  - EOSINOPHIL COUNT INCREASED [None]
  - IMMUNODEFICIENCY [None]
